FAERS Safety Report 6096994-1 (Version None)
Quarter: 2009Q1

REPORT INFORMATION
  Report Type: 
  Country: None (occurrence: None)
  Receive Date: 20090227
  Receipt Date: 20090216
  Transmission Date: 20090719
  Serious: Yes (Hospitalization)
  Sender: FDA-Public Use
  Company Number: PHHY2009HU05494

PATIENT
  Age: 79 Year
  Sex: Male

DRUGS (1)
  1. EXFORGE [Suspect]
     Indication: HYPERTENSION
     Dosage: 10/160MG
     Route: 048

REACTIONS (2)
  - BLOOD CREATININE INCREASED [None]
  - CEREBROVASCULAR ACCIDENT [None]
